FAERS Safety Report 13719799 (Version 1)
Quarter: 2017Q3

REPORT INFORMATION
  Report Type: Not Available
  Country: JP (occurrence: JP)
  Receive Date: 20170705
  Receipt Date: 20170705
  Transmission Date: 20171127
  Serious: Yes (Hospitalization)
  Sender: FDA-Public Use
  Company Number: JP-ANIPHARMA-2017-JP-000044

PATIENT
  Age: 34 Year
  Sex: Female

DRUGS (4)
  1. PROMETHAZINE HCL (NON-SPECIFIC) [Suspect]
     Active Substance: PROMETHAZINE HYDROCHLORIDE
  2. ETAZOLAM [Suspect]
     Active Substance: ETIZOLAM
  3. CHLORPROMAZINE. [Suspect]
     Active Substance: CHLORPROMAZINE
  4. PHENOBARBITAL. [Suspect]
     Active Substance: PHENOBARBITAL

REACTIONS (3)
  - Cholestasis [Recovered/Resolved]
  - Xanthoma [Recovered/Resolved]
  - Drug reaction with eosinophilia and systemic symptoms [Recovered/Resolved]
